FAERS Safety Report 21621096 (Version 1)
Quarter: 2022Q4

REPORT INFORMATION
  Report Type: Report from Study
  Country: US (occurrence: US)
  Receive Date: 20221121
  Receipt Date: 20221121
  Transmission Date: 20230112
  Serious: No
  Sender: FDA-Public Use
  Company Number: US-ABBVIE-4193095

PATIENT
  Sex: Female

DRUGS (1)
  1. HUMIRA [Suspect]
     Active Substance: ADALIMUMAB
     Indication: Rheumatoid arthritis
     Dosage: FORM STRENGTH: 40 MILLIGRAM
     Route: 058
     Dates: start: 202208

REACTIONS (6)
  - Contusion [Unknown]
  - Rheumatoid arthritis [Not Recovered/Not Resolved]
  - Burning sensation [Unknown]
  - Dysstasia [Unknown]
  - Muscular weakness [Unknown]
  - Drug ineffective [Unknown]
